FAERS Safety Report 8538125-1 (Version None)
Quarter: 2012Q3

REPORT INFORMATION
  Report Type: 
  Country: None (occurrence: None)
  Receive Date: 20120725
  Receipt Date: 20120405
  Transmission Date: 20120928
  Serious: Yes (Life-Threatening, Hospitalization)
  Sender: FDA-Public Use
  Company Number: PHHO2012FR005142

PATIENT
  Sex: Male

DRUGS (4)
  1. PREDNISONE TAB [Suspect]
     Indication: RENAL TRANSPLANT
     Dosage: 70 MG, QD
     Route: 002
     Dates: start: 20120127
  2. CELLCEPT [Suspect]
     Indication: RENAL TRANSPLANT
     Dosage: 3 G, QD
     Route: 002
     Dates: start: 20120126
  3. ZORTRESS [Suspect]
     Dosage: 1.25 MG, QD
     Dates: end: 20120403
  4. ZORTRESS [Suspect]
     Indication: RENAL TRANSPLANT
     Dosage: 4 MG, QD
     Route: 002
     Dates: start: 20120131, end: 20120328

REACTIONS (5)
  - LEFT VENTRICULAR FAILURE [None]
  - LUNG INFECTION [None]
  - PLEURAL EFFUSION [None]
  - PULMONARY OEDEMA [None]
  - RESPIRATORY DISTRESS [None]
